FAERS Safety Report 7266250-4 (Version None)
Quarter: 2011Q1

REPORT INFORMATION
  Report Type: 
  Country: None (occurrence: None)
  Receive Date: 20110131
  Receipt Date: 20110117
  Transmission Date: 20110831
  Serious: Yes (Death, Other)
  Sender: FDA-Public Use
  Company Number: US-CELGENEUS-163-21880-11011795

PATIENT
  Age: 69 Year

DRUGS (4)
  1. DEXAMETHASONE [Suspect]
     Indication: MULTIPLE MYELOMA
     Route: 065
  2. THALOMID [Suspect]
     Indication: MULTIPLE MYELOMA
     Route: 048
  3. PLACEBO FOR CC-5013 [Suspect]
     Indication: MULTIPLE MYELOMA
     Route: 048
  4. MELPHALAN [Suspect]
     Indication: MULTIPLE MYELOMA
     Route: 065

REACTIONS (3)
  - OVARIAN EPITHELIAL CANCER [None]
  - ENDOMETRIAL CANCER [None]
  - MULTIPLE MYELOMA [None]
